FAERS Safety Report 8950910 (Version 1)
Quarter: 2012Q4

REPORT INFORMATION
  Report Type: 
  Country: FR (occurrence: FR)
  Receive Date: 20121207
  Receipt Date: 20121207
  Transmission Date: 20130627
  Serious: Yes (Death)
  Sender: FDA-Public Use
  Company Number: FR-SANOFI-AVENTIS-2012SA088266

PATIENT
  Age: 85 Year
  Sex: Male

DRUGS (7)
  1. CALCIPARINE [Suspect]
     Indication: PREVENTION
     Route: 058
     Dates: start: 20120811, end: 20120822
  2. LASILIX [Suspect]
     Indication: ACUTE CORONARY SYNDROME
     Route: 048
     Dates: start: 20120812, end: 20120823
  3. KARDEGIC [Suspect]
     Indication: DRUG USE FOR UNKNOWN INDICATION
     Route: 048
     Dates: start: 20120812, end: 20120822
  4. TAHOR [Suspect]
     Indication: ACUTE CORONARY SYNDROME
     Dosage: strength: 10mg
     Route: 048
     Dates: start: 20120812, end: 20120821
  5. CARDENSIEL [Suspect]
     Indication: ACUTE CORONARY SYNDROME
     Dosage: strength: 2.5mg
     Route: 048
     Dates: start: 20120812, end: 20120902
  6. INEXIUM [Suspect]
     Indication: DRUG USE FOR UNKNOWN INDICATION
     Dosage: strength: 40mg
     Route: 048
     Dates: start: 20120812, end: 20120825
  7. INSULATARD NPH HUMAN [Suspect]
     Indication: DRUG USE FOR UNKNOWN INDICATION
     Dosage: strength: 100 Iu/ml
     Route: 058
     Dates: start: 20120401, end: 20120902

REACTIONS (1)
  - Heparin-induced thrombocytopenia [Fatal]
